FAERS Safety Report 7954118-7 (Version None)
Quarter: 2011Q4

REPORT INFORMATION
  Report Type: 
  Country: None (occurrence: None)
  Receive Date: 20111202
  Receipt Date: 20111122
  Transmission Date: 20120403
  Serious: Yes (Hospitalization)
  Sender: FDA-Public Use
  Company Number: FR-JNJFOC-20110500942

PATIENT
  Sex: Male
  Weight: 35.8 kg

DRUGS (10)
  1. HUMIRA [Concomitant]
     Dates: start: 20091216
  2. AZATHIOPRINE [Concomitant]
  3. PREDNISONE TAB [Concomitant]
  4. GROWTH HORMONE [Concomitant]
  5. HUMIRA [Concomitant]
     Dates: start: 20100216
  6. INFLIXIMAB, RECOMBINANT [Suspect]
     Route: 042
     Dates: start: 20060929, end: 20061113
  7. FERROUS FUMARATE [Concomitant]
  8. INFLIXIMAB, RECOMBINANT [Suspect]
     Indication: CROHN'S DISEASE
     Route: 042
     Dates: start: 20110224
  9. CALCIUM WITH VITAMIN D [Concomitant]
  10. FOLIC ACID [Concomitant]

REACTIONS (2)
  - CROHN'S DISEASE [None]
  - COLONIC STENOSIS [None]
